FAERS Safety Report 9696796 (Version 2)
Quarter: 2013Q4

REPORT INFORMATION
  Report Type: Spontaneous
  Country: US (occurrence: US)
  Receive Date: 20131119
  Receipt Date: 20131119
  Transmission Date: 20140711
  Serious: No
  Sender: FDA-Public Use
  Company Number: US-GILEAD-2007-0014511

PATIENT
  Age: 59 Year
  Sex: Male
  Weight: 59 kg

DRUGS (11)
  1. LETAIRIS [Suspect]
     Indication: PULMONARY ARTERIAL HYPERTENSION
     Route: 048
     Dates: start: 20071109, end: 200711
  2. LETAIRIS [Suspect]
     Route: 048
     Dates: start: 200712, end: 20080107
  3. LISINOPRIL [Concomitant]
     Route: 048
  4. PHENOBARBITAL [Concomitant]
     Route: 048
  5. NIFEDICAL XL [Concomitant]
     Route: 048
  6. METRONIDAZOLE [Concomitant]
     Route: 048
  7. CUPRIMINE [Concomitant]
     Route: 048
  8. NEXIUM [Concomitant]
     Route: 048
  9. CHANTIX [Concomitant]
     Route: 048
  10. OXYGEN [Concomitant]
     Dosage: QHS + WITH ACTIVITY
  11. REVATIO [Concomitant]
     Route: 048
     Dates: start: 20080105

REACTIONS (2)
  - Dyspnoea [Recovered/Resolved]
  - Oedema peripheral [Recovered/Resolved]
